FAERS Safety Report 18295547 (Version 1)
Quarter: 2020Q3

REPORT INFORMATION
  Report Type: Spontaneous
  Country: CA (occurrence: CA)
  Receive Date: 20200922
  Receipt Date: 20200922
  Transmission Date: 20201103
  Serious: Yes (Life-Threatening, Hospitalization, Other)
  Sender: FDA-Public Use
  Company Number: CA-TEVA-2020-CA-1829643

PATIENT
  Age: 81 Year
  Sex: Female

DRUGS (1)
  1. LETROZOLE. [Suspect]
     Active Substance: LETROZOLE
     Indication: BREAST CANCER
     Route: 048

REACTIONS (5)
  - Stridor [Unknown]
  - SARS-CoV-2 test negative [Unknown]
  - Mouth swelling [Unknown]
  - Angioedema [Unknown]
  - Swollen tongue [Unknown]
